FAERS Safety Report 8054587-0 (Version None)
Quarter: 2012Q1

REPORT INFORMATION
  Report Type: 
  Country: None (occurrence: None)
  Receive Date: 20120119
  Receipt Date: 20120112
  Transmission Date: 20120608
  Serious: Yes (Hospitalization)
  Sender: FDA-Public Use
  Company Number: US-BIOGENIDEC-2012BI001531

PATIENT
  Age: 32 Year
  Sex: Female

DRUGS (1)
  1. AVONEX [Suspect]
     Indication: MULTIPLE SCLEROSIS
     Route: 030
     Dates: start: 20091201

REACTIONS (8)
  - GAIT DISTURBANCE [None]
  - ASTHENIA [None]
  - HYPERTENSION [None]
  - DIZZINESS [None]
  - NEURALGIA [None]
  - BALANCE DISORDER [None]
  - MUSCLE SPASMS [None]
  - FATIGUE [None]
